FAERS Safety Report 6216229-6 (Version None)
Quarter: 2009Q2

REPORT INFORMATION
  Report Type: 
  Country: None (occurrence: None)
  Receive Date: 20090605
  Receipt Date: 20090526
  Transmission Date: 20091009
  Serious: Yes (Hospitalization)
  Sender: FDA-Public Use
  Company Number: A0788660A

PATIENT
  Age: 58 Year
  Sex: Male
  Weight: 101.8 kg

DRUGS (2)
  1. AVANDIA [Suspect]
     Route: 065
     Dates: start: 20000101, end: 20040101
  2. GLUCOTROL [Concomitant]
     Dates: start: 19990101

REACTIONS (4)
  - BLOOD CHOLESTEROL ABNORMAL [None]
  - CEREBROVASCULAR ACCIDENT [None]
  - HYPERTENSION [None]
  - MYOCARDIAL INFARCTION [None]
